FAERS Safety Report 11714309 (Version 1)
Quarter: 2015Q4

REPORT INFORMATION
  Report Type: Spontaneous
  Country: US (occurrence: None)
  Receive Date: 20151106
  Receipt Date: 20151106
  Transmission Date: 20160304
  Serious: Yes (Death, Hospitalization)
  Sender: FDA-Public Use
  Company Number: None

PATIENT
  Age: 75 Year
  Sex: Male
  Weight: 66 kg

DRUGS (5)
  1. DAPSONE. [Concomitant]
     Active Substance: DAPSONE
  2. OXYCODONE [Concomitant]
     Active Substance: OXYCODONE
  3. ACETAMINOPHEN-HYDROCODONE [Concomitant]
  4. RUXOLITINIB [Suspect]
     Active Substance: RUXOLITINIB
     Indication: CHRONIC LEUKAEMIA
     Route: 048
     Dates: start: 20141218, end: 20151028
  5. FAMOTIDINE. [Concomitant]
     Active Substance: FAMOTIDINE

REACTIONS (10)
  - Asthenia [None]
  - Malignant neoplasm progression [None]
  - Pneumonia [None]
  - Chronic leukaemia [None]
  - Fatigue [None]
  - Pain [None]
  - Hypoxia [None]
  - Musculoskeletal pain [None]
  - Slow response to stimuli [None]
  - No therapeutic response [None]

NARRATIVE: CASE EVENT DATE: 20151028
